FAERS Safety Report 16157941 (Version 1)
Quarter: 2019Q2

REPORT INFORMATION
  Report Type: Spontaneous
  Country: EE (occurrence: EE)
  Receive Date: 20190404
  Receipt Date: 20190404
  Transmission Date: 20190711
  Serious: Yes (Death, Life-Threatening, Hospitalization)
  Sender: FDA-Public Use
  Company Number: EE-009507513-1903EST013039

PATIENT
  Age: 68 Year
  Sex: Female

DRUGS (1)
  1. KEYTRUDA [Suspect]
     Active Substance: PEMBROLIZUMAB
     Indication: LUNG NEOPLASM MALIGNANT
     Dosage: 200 MILLIGRAM, CYCLICAL
     Route: 042
     Dates: start: 20180912, end: 20181005

REACTIONS (4)
  - Abdominal abscess [Fatal]
  - Diverticular perforation [Fatal]
  - Abdominal wound dehiscence [Fatal]
  - Aortic thrombosis [Fatal]

NARRATIVE: CASE EVENT DATE: 20181024
